FAERS Safety Report 15768048 (Version 1)
Quarter: 2018Q4

REPORT INFORMATION
  Report Type: Spontaneous
  Country: GB (occurrence: GB)
  Receive Date: 20181227
  Receipt Date: 20181227
  Transmission Date: 20190205
  Serious: Yes (Other)
  Sender: FDA-Public Use
  Company Number: GB-MYLANLABS-2018M1096495

PATIENT
  Age: 48 Year
  Sex: Female

DRUGS (4)
  1. SUMATRIPTAN. [Suspect]
     Active Substance: SUMATRIPTAN
     Indication: PRODUCT USED FOR UNKNOWN INDICATION
     Dosage: 50 MILLIGRAM, PRN
     Route: 048
  2. RAMIPRIL. [Suspect]
     Active Substance: RAMIPRIL
     Indication: PRODUCT USED FOR UNKNOWN INDICATION
     Route: 048
  3. ZOPICLONE [Concomitant]
     Active Substance: ZOPICLONE
     Dosage: 3.75 MILLIGRAM, PRN (AT NIGHT. ACUTE TREATMENT)
  4. AMLODIPINE [Suspect]
     Active Substance: AMLODIPINE BESYLATE
     Indication: HYPERTENSION
     Route: 048
     Dates: start: 20170901

REACTIONS (4)
  - Neuropathy peripheral [Unknown]
  - Sensory disturbance [Unknown]
  - Paraesthesia [Unknown]
  - Hyperaesthesia [Unknown]

NARRATIVE: CASE EVENT DATE: 20170901
